FAERS Safety Report 16083242 (Version 2)
Quarter: 2019Q2

REPORT INFORMATION
  Report Type: Report from Study
  Country: US (occurrence: US)
  Receive Date: 20190318
  Receipt Date: 20190514
  Transmission Date: 20190711
  Serious: Yes (Other)
  Sender: FDA-Public Use
  Company Number: US-ROCHE-2280196

PATIENT
  Age: 2 Year
  Sex: Male
  Weight: 27 kg

DRUGS (9)
  1. ENTRECTINIB [Suspect]
     Active Substance: ENTRECTINIB
     Route: 048
     Dates: start: 20190312, end: 20190430
  2. BEVACIZUMAB. [Suspect]
     Active Substance: BEVACIZUMAB
     Indication: ASTROCYTOMA
     Route: 042
     Dates: start: 20160708, end: 20170105
  3. ENTRECTINIB [Suspect]
     Active Substance: ENTRECTINIB
     Indication: ASTROCYTOMA
     Dosage: ON 19/FEB/2019, HE RECEIVED THE MOST RECENT DOSE OF ENTRECTINIB PRIOR TO THE ADVERSE EVENT ONSET.?ST
     Route: 048
     Dates: start: 20180418, end: 20190219
  4. VINCRISTINE SULFATE. [Concomitant]
     Active Substance: VINCRISTINE SULFATE
     Indication: ASTROCYTOMA
  5. BEVACIZUMAB. [Suspect]
     Active Substance: BEVACIZUMAB
     Indication: GLIOBLASTOMA
  6. THIOGUANINE [Concomitant]
     Active Substance: THIOGUANINE
     Indication: ASTROCYTOMA
  7. CARBOPLATIN. [Concomitant]
     Active Substance: CARBOPLATIN
     Indication: ASTROCYTOMA
  8. PROCARBAZINE HYDROCHLORIDE [Concomitant]
     Active Substance: PROCARBAZINE HYDROCHLORIDE
     Indication: ASTROCYTOMA
  9. LOMUSTINE. [Concomitant]
     Active Substance: LOMUSTINE
     Indication: ASTROCYTOMA

REACTIONS (6)
  - Neoplasm progression [Not Recovered/Not Resolved]
  - Radiotherapy [Unknown]
  - Pancreatitis [Recovered/Resolved]
  - Tumour excision [Unknown]
  - Lipase increased [Not Recovered/Not Resolved]
  - Astrocytoma surgery [Unknown]

NARRATIVE: CASE EVENT DATE: 20170105
